FAERS Safety Report 5165621-X (Version None)
Quarter: 2006Q4

REPORT INFORMATION
  Report Type: 
  Country: None (occurrence: None)
  Receive Date: 20061124
  Receipt Date: 20061113
  Transmission Date: 20070319
  Serious: Yes (Other)
  Sender: FDA-Public Use
  Company Number: 149820ISR

PATIENT
  Age: 63 Year
  Sex: Female

DRUGS (2)
  1. METFORMIN HCL [Suspect]
     Indication: DIABETES MELLITUS NON-INSULIN-DEPENDENT
     Dosage: 500 MG
     Route: 048
  2. RIMONABANT [Suspect]
     Indication: WEIGHT DECREASED
     Dosage: 80 MG (20 MG, 4 IN 1 D)

REACTIONS (4)
  - AGITATION [None]
  - DRUG INTERACTION [None]
  - PRURITUS [None]
  - RESTLESSNESS [None]
